FAERS Safety Report 5975633-1 (Version None)
Quarter: 2008Q4

REPORT INFORMATION
  Report Type: 
  Country: None (occurrence: None)
  Receive Date: 20081128
  Receipt Date: 20081114
  Transmission Date: 20090506
  Serious: Yes (Hospitalization)
  Sender: FDA-Public Use
  Company Number: 8039590

PATIENT
  Age: 27 Year
  Sex: Male
  Weight: 84 kg

DRUGS (4)
  1. KEPPRA [Suspect]
     Indication: EPILEPSY
     Dosage: 2000 MG 2/D PO
     Route: 048
     Dates: start: 20080214, end: 20081110
  2. KEPPRA [Suspect]
     Indication: EPILEPSY
     Dosage: 1500 MG /D PO
     Route: 048
     Dates: start: 20081111
  3. VITAMIN B6 [Concomitant]
  4. VITAMIN B-12 [Concomitant]

REACTIONS (5)
  - ALCOHOL USE [None]
  - FALL [None]
  - GRAND MAL CONVULSION [None]
  - STATUS EPILEPTICUS [None]
  - VOMITING [None]
